FAERS Safety Report 5588560-9 (Version None)
Quarter: 2008Q1

REPORT INFORMATION
  Report Type: 
  Country: None (occurrence: None)
  Receive Date: 20080111
  Receipt Date: 20070226
  Transmission Date: 20080703
  Serious: No
  Sender: FDA-Public Use
  Company Number: US-BRISTOL-MYERS SQUIBB COMPANY-13692181

PATIENT

DRUGS (1)
  1. DESYREL [Suspect]
     Route: 048

REACTIONS (1)
  - DRUG SCREEN POSITIVE [None]
